FAERS Safety Report 7996661-0 (Version None)
Quarter: 2011Q4

REPORT INFORMATION
  Report Type: 
  Country: None (occurrence: None)
  Receive Date: 20111221
  Receipt Date: 20111208
  Transmission Date: 20120403
  Serious: Yes (Other)
  Sender: FDA-Public Use
  Company Number: US-ELI_LILLY_AND_COMPANY-US201101000776

PATIENT
  Sex: Female

DRUGS (12)
  1. MIRALAX [Concomitant]
     Dosage: 17 G, EACH EVENING
     Route: 048
  2. METROLOTION [Concomitant]
     Indication: ROSACEA
     Dosage: UNK, 2/D
  3. FORTEO [Suspect]
     Dosage: 20 UG, EACH EVENING
  4. MAXZIDE [Concomitant]
     Dosage: UNK, EACH MORNING
     Route: 048
  5. CALCIUM +VIT D [Concomitant]
     Dosage: 500 MG, 2/D
     Route: 048
  6. VACCINE, INFLUENZAE [Concomitant]
  7. FORTEO [Suspect]
     Dosage: 20 UG, QD
     Dates: start: 20101101, end: 20111201
  8. AMITRIPTYLINE HCL [Concomitant]
     Dosage: 50 MG, EACH EVENING
     Route: 048
  9. VIT C [Concomitant]
     Dosage: 250 MG, DAILY (1/D)
     Route: 048
  10. COQ-10 [Concomitant]
     Dosage: 100 MG, 3/W
  11. FORTEO [Suspect]
     Indication: OSTEOPOROSIS
     Dosage: 20 UG, DAILY (1/D)
     Route: 065
     Dates: start: 20101101, end: 20110210
  12. NEXIUM [Concomitant]
     Dosage: 40 MG, DAILY (1/D)
     Route: 048

REACTIONS (8)
  - LIGAMENT PAIN [None]
  - DIZZINESS [None]
  - BLOOD PRESSURE INCREASED [None]
  - FEELING ABNORMAL [None]
  - HAEMORRHOID OPERATION [None]
  - HEADACHE [None]
  - VERTEBROPLASTY [None]
  - MYALGIA [None]
